FAERS Safety Report 8427450-0 (Version None)
Quarter: 2012Q2

REPORT INFORMATION
  Report Type: 
  Country: None (occurrence: None)
  Receive Date: 20120611
  Receipt Date: 20120601
  Transmission Date: 20120825
  Serious: Yes (Other)
  Sender: FDA-Public Use
  Company Number: JP-VERTEX PHARMACEUTICALS INC.-AE-2012-008317

PATIENT
  Age: 62 Year
  Sex: Female

DRUGS (6)
  1. PEGINTERFERON ALFA-2B [Concomitant]
     Route: 051
     Dates: start: 20120406, end: 20120511
  2. TELAVIC (TELAPREVIR) [Suspect]
     Indication: HEPATITIS C
     Route: 048
     Dates: start: 20120406, end: 20120419
  3. TELAVIC (TELAPREVIR) [Suspect]
     Route: 048
     Dates: start: 20120511, end: 20120517
  4. REBETOL [Concomitant]
     Route: 048
     Dates: start: 20120420, end: 20120422
  5. REBETOL [Concomitant]
     Indication: HEPATITIS C
     Route: 048
     Dates: start: 20120406, end: 20120419
  6. TELAVIC (TELAPREVIR) [Suspect]
     Route: 048
     Dates: start: 20120420, end: 20120510

REACTIONS (1)
  - RENAL IMPAIRMENT [None]
